FAERS Safety Report 22538688 (Version 1)
Quarter: 2023Q2

REPORT INFORMATION
  Report Type: Report from Study
  Country: AU (occurrence: AU)
  Receive Date: 20230609
  Receipt Date: 20230609
  Transmission Date: 20230722
  Serious: Yes (Hospitalization)
  Sender: FDA-Public Use
  Company Number: AU-BRISTOL-MYERS SQUIBB COMPANY-2023-081076

PATIENT
  Age: 58 Year
  Sex: Male

DRUGS (10)
  1. NIVOLUMAB [Suspect]
     Active Substance: NIVOLUMAB
     Indication: Hormone-refractory prostate cancer
     Route: 042
     Dates: start: 20230223, end: 20230316
  2. IPILIMUMAB [Suspect]
     Active Substance: IPILIMUMAB
     Indication: Hormone-refractory prostate cancer
     Route: 042
     Dates: start: 20230223, end: 20230223
  3. 177LU-PSMA-R2 [Suspect]
     Active Substance: 177LU-PSMA-R2
     Indication: Hormone-refractory prostate cancer
     Route: 042
     Dates: start: 20230302, end: 20230302
  4. DEGARELIX [Concomitant]
     Active Substance: DEGARELIX
     Indication: Prophylaxis
     Dosage: Q4WK
     Route: 058
     Dates: start: 20220117
  5. ENZALUTAMIDE [Concomitant]
     Active Substance: ENZALUTAMIDE
     Indication: Prophylaxis
     Route: 048
     Dates: start: 20221010
  6. OXYCODONE HYDROCHLORIDE [Concomitant]
     Active Substance: OXYCODONE HYDROCHLORIDE
     Indication: Adverse event
     Dosage: PRN
     Route: 048
     Dates: start: 20230202
  7. BUPRENORPHINE [Concomitant]
     Active Substance: BUPRENORPHINE
     Indication: Chronic disease
     Dosage: PRN
     Route: 062
     Dates: start: 20230202, end: 20230302
  8. OXYCODONE [Concomitant]
     Active Substance: OXYCODONE
     Indication: Hormone-refractory prostate cancer
     Route: 048
     Dates: start: 20230302
  9. OXYCODONE [Concomitant]
     Active Substance: OXYCODONE
     Route: 048
     Dates: start: 20230302
  10. DEXAMETHASONE [Concomitant]
     Active Substance: DEXAMETHASONE
     Indication: Hormone-refractory prostate cancer
     Route: 048
     Dates: start: 20230324, end: 20230331

REACTIONS (1)
  - Enterocolitis [Recovered/Resolved]

NARRATIVE: CASE EVENT DATE: 20230331
